FAERS Safety Report 20065561 (Version 1)
Quarter: 2021Q4

REPORT INFORMATION
  Report Type: Spontaneous
  Country: DE (occurrence: DE)
  Receive Date: 20211113
  Receipt Date: 20211113
  Transmission Date: 20220304
  Serious: Yes (Hospitalization, Other)
  Sender: FDA-Public Use
  Company Number: None

PATIENT
  Age: 77 Year
  Sex: Female
  Weight: 67 kg

DRUGS (7)
  1. OLMESARTAN [Suspect]
     Active Substance: OLMESARTAN
     Indication: Hypertension
     Dosage: 20 MG,QD (1-0-0, MINDESTENS SEIT 2016)
     Route: 048
     Dates: start: 2016
  2. SIMVASTATIN [Concomitant]
     Active Substance: SIMVASTATIN
     Indication: Hyperlipidaemia
     Dosage: 20 MG,QD (1-0-0, MINDESTENS SEIT 2016)
     Route: 048
     Dates: start: 2016
  3. FLECAINIDE [Concomitant]
     Active Substance: FLECAINIDE
     Indication: Atrial fibrillation
     Dosage: 20 MG, Q12H (1-0-1, MIND. SEIT 2016)
     Route: 048
     Dates: start: 2016
  4. METOPROLOL SUCCINATE [Concomitant]
     Active Substance: METOPROLOL SUCCINATE
     Indication: Hypertension
     Dosage: 47.5 MG,QD (0.5-0-0.5, MIND. SEIT 2016)
     Route: 048
     Dates: start: 2016
  5. METOPROLOL SUCCINATE [Concomitant]
     Active Substance: METOPROLOL SUCCINATE
     Indication: Atrial fibrillation
  6. ASPIRIN [Concomitant]
     Active Substance: ASPIRIN
     Indication: Product used for unknown indication
     Dosage: 100 MG,QD (1-0-0, MINDESTENS SEIT 2016)
     Route: 048
     Dates: start: 2016
  7. AMLODIPINE BESYLATE [Concomitant]
     Active Substance: AMLODIPINE BESYLATE
     Indication: Hypertension
     Dosage: 5 MG,QD (1-0-0, MIND. SEIT 2016)
     Route: 048
     Dates: start: 2016

REACTIONS (4)
  - Acute kidney injury [Recovering/Resolving]
  - Gastrointestinal disorder [Recovering/Resolving]
  - Colitis microscopic [Recovering/Resolving]
  - Diarrhoea [Recovering/Resolving]

NARRATIVE: CASE EVENT DATE: 20210516
